FAERS Safety Report 21161752 (Version 1)
Quarter: 2022Q3

REPORT INFORMATION
  Report Type: Spontaneous
  Country: US (occurrence: None)
  Receive Date: 20220802
  Receipt Date: 20220802
  Transmission Date: 20221026
  Serious: Yes (unspecified)
  Sender: FDA-Public Use
  Company Number: None

PATIENT
  Age: 34 Year
  Sex: Female
  Weight: 54 kg

DRUGS (1)
  1. .DELTA.8-TETRAHYDROCANNABINOL\CANNABIDIOL\HERBALS [Suspect]
     Active Substance: .DELTA.8-TETRAHYDROCANNABINOL\CANNABIDIOL\HERBALS
     Indication: Substance use
     Dosage: OTHER QUANTITY : .5 GUMMY;?
     Dates: start: 20220714, end: 20220714

REACTIONS (4)
  - Vomiting [None]
  - Hypotension [None]
  - Body temperature decreased [None]
  - Presyncope [None]

NARRATIVE: CASE EVENT DATE: 20220714
